FAERS Safety Report 10030559 (Version 2)
Quarter: 2014Q1

REPORT INFORMATION
  Report Type: Spontaneous
  Country: US (occurrence: US)
  Receive Date: 20140323
  Receipt Date: 20140323
  Transmission Date: 20141002
  Serious: No
  Sender: FDA-Public Use
  Company Number: US-ALLERGAN-1318492US

PATIENT
  Sex: Female

DRUGS (3)
  1. LATISSE 0.03% [Suspect]
     Indication: PRODUCT USED FOR UNKNOWN INDICATION
     Dosage: 2 GTT, QOD
     Route: 061
  2. LATISSE 0.03% [Suspect]
     Dosage: 2 GTT, QHS
     Route: 061
     Dates: start: 201310
  3. BIRTH CONTROL PILLS [Concomitant]
     Indication: CONTRACEPTION
     Dosage: UNK

REACTIONS (6)
  - Inappropriate schedule of drug administration [Unknown]
  - Lacrimation increased [Unknown]
  - Eye irritation [Unknown]
  - Ocular hyperaemia [Unknown]
  - Eye irritation [Unknown]
  - Dry eye [Recovering/Resolving]
